FAERS Safety Report 18511666 (Version 3)
Quarter: 2020Q4

REPORT INFORMATION
  Report Type: Spontaneous
  Country: ID (occurrence: ID)
  Receive Date: 20201117
  Receipt Date: 20201125
  Transmission Date: 20210114
  Serious: Yes (Life-Threatening, Disabling, Other)
  Sender: FDA-Public Use
  Company Number: NVSC2020ID306147

PATIENT
  Age: 39 Year
  Sex: Male
  Weight: 130 kg

DRUGS (3)
  1. ONBREZ BREEZHALER [Suspect]
     Active Substance: INDACATEROL
     Dosage: UNK
     Route: 055
     Dates: start: 20201007, end: 20201109
  2. ONBREZ BREEZHALER [Suspect]
     Active Substance: INDACATEROL
     Indication: CHRONIC OBSTRUCTIVE PULMONARY DISEASE
     Dosage: 150 UG, QD
     Route: 055
     Dates: start: 20201005, end: 20201107
  3. VENTOLIN [Concomitant]
     Active Substance: ALBUTEROL SULFATE
     Indication: PRODUCT USED FOR UNKNOWN INDICATION
     Dosage: UNK
     Route: 065

REACTIONS (12)
  - Chest discomfort [Recovered/Resolved]
  - Cough [Unknown]
  - Loss of consciousness [Recovered/Resolved]
  - Bronchospasm [Recovered/Resolved]
  - Apnoea [Recovered/Resolved]
  - Cough [Recovered/Resolved]
  - Head injury [Unknown]
  - Bradycardia [Recovered/Resolved]
  - Hypotension [Recovered/Resolved]
  - Syncope [Recovered/Resolved]
  - Cough [Recovered/Resolved]
  - Syncope [Recovered/Resolved]

NARRATIVE: CASE EVENT DATE: 20201107
